FAERS Safety Report 8331936-7 (Version None)
Quarter: 2012Q2

REPORT INFORMATION
  Report Type: 
  Country: None (occurrence: None)
  Receive Date: 20120502
  Receipt Date: 20120419
  Transmission Date: 20120825
  Serious: Yes (Hospitalization, Other)
  Sender: FDA-Public Use
  Company Number: US-ELI_LILLY_AND_COMPANY-US201203006143

PATIENT
  Sex: Female

DRUGS (9)
  1. PROLIA [Concomitant]
  2. MAGNESIUM [Concomitant]
  3. SYNTHROID [Concomitant]
  4. ANTIHYPERTENSIVES [Concomitant]
     Indication: HYPERTENSION
  5. VITAMIN TAB [Concomitant]
  6. CALCIUM [Concomitant]
  7. ANALGESICS [Concomitant]
     Indication: PAIN
  8. FISH OIL [Concomitant]
  9. EVISTA [Suspect]
     Indication: OSTEOPOROSIS
     Dosage: 60 MG, QD
     Dates: start: 20040101, end: 20111103

REACTIONS (9)
  - HIP FRACTURE [None]
  - TRANSFUSION [None]
  - ECCHYMOSIS [None]
  - FEMUR FRACTURE [None]
  - MOBILITY DECREASED [None]
  - FALL [None]
  - DRUG INEFFECTIVE [None]
  - PAIN IN EXTREMITY [None]
  - OEDEMA PERIPHERAL [None]
